FAERS Safety Report 4344325-7 (Version None)
Quarter: 2004Q2

REPORT INFORMATION
  Report Type: 
  Country: None (occurrence: None)
  Receive Date: 20040422
  Receipt Date: 20021220
  Transmission Date: 20050107
  Serious: Yes (Other)
  Sender: FDA-Public Use
  Company Number: FR-BRISTOL-MYERS SQUIBB COMPANY-12143574

PATIENT
  Age: 30 Year
  Sex: Female
  Weight: 43 kg

DRUGS (4)
  1. ATAZANAVIR [Suspect]
     Indication: HIV INFECTION
     Dosage: DOSE, FREQUENCY, AND START DATE NOT REPORTED.
     Route: 048
  2. VIREAD [Suspect]
     Indication: HIV INFECTION
     Route: 048
     Dates: start: 20020801
  3. EPIVIR [Suspect]
     Indication: HIV INFECTION
     Route: 048
     Dates: start: 20020801
  4. LEVOTHYROXINE SODIUM [Concomitant]
     Route: 048
     Dates: start: 19840101

REACTIONS (3)
  - CYTOLYTIC HEPATITIS [None]
  - HAEMANGIOMA [None]
  - HEPATIC LESION [None]
